FAERS Safety Report 5210051-5 (Version None)
Quarter: 2006Q4

REPORT INFORMATION
  Report Type: 
  Country: None (occurrence: None)
  Receive Date: 20061127
  Receipt Date: 20060329
  Transmission Date: 20070319
  Serious: Yes (Other)
  Sender: FDA-Public Use
  Company Number: 2006BH007259

PATIENT
  Age: 44 Year
  Sex: Female
  Weight: 65.5 kg

DRUGS (4)
  1. DIANEAL [Suspect]
     Indication: DIALYSIS
     Dosage: 6 L; IP
     Route: 033
  2. VANCOMYCIN HYDROCHLORIDE [Concomitant]
  3. ANCEF [Concomitant]
  4. GENTAMICIN [Concomitant]

REACTIONS (2)
  - ACINETOBACTER INFECTION [None]
  - PERITONITIS BACTERIAL [None]
